FAERS Safety Report 4462986-9 (Version None)
Quarter: 2004Q3

REPORT INFORMATION
  Report Type: 
  Country: None (occurrence: None)
  Receive Date: 20040930
  Receipt Date: 20040927
  Transmission Date: 20050211
  Serious: Yes (Other)
  Sender: FDA-Public Use
  Company Number: 200412217DE

PATIENT
  Sex: 0

DRUGS (1)
  1. LANTUS [Suspect]
     Indication: DIABETES MELLITUS

REACTIONS (1)
  - RETINAL HAEMORRHAGE [None]
